FAERS Safety Report 6411050-8 (Version None)
Quarter: 2009Q4

REPORT INFORMATION
  Report Type: 
  Country: None (occurrence: None)
  Receive Date: 20091022
  Receipt Date: 20091012
  Transmission Date: 20100525
  Serious: Yes (Other)
  Sender: FDA-Public Use
  Company Number: US-ABBOTT-09P-163-0602052-00

PATIENT
  Sex: Female

DRUGS (22)
  1. HUMIRA [Suspect]
     Indication: RHEUMATOID ARTHRITIS
     Dates: start: 20091005
  2. TEGRETOL [Concomitant]
     Indication: CONVULSION
  3. DEPAKOTE [Concomitant]
     Indication: CONVULSION
  4. DILANTIN [Concomitant]
     Indication: CONVULSION
  5. KEPPRA [Concomitant]
     Indication: CONVULSION
  6. TOPAMAX [Concomitant]
     Indication: GRAND MAL CONVULSION
  7. LAMICTAL [Concomitant]
     Indication: CONVULSION
  8. PHENOBARBITAL [Concomitant]
     Indication: CONVULSION
  9. CELEBREX [Concomitant]
     Indication: RHEUMATOID ARTHRITIS
  10. NEXIUM [Concomitant]
     Indication: GASTRIC DISORDER
  11. PRIMIDONE [Concomitant]
     Indication: TREMOR
  12. SYNTHROID [Concomitant]
     Indication: HYPOTHYROIDISM
  13. BENTYL [Concomitant]
     Indication: GASTRIC DISORDER
  14. REGLAN [Concomitant]
     Indication: GASTRIC DISORDER
  15. CARAFATE [Concomitant]
     Indication: GASTRIC DISORDER
  16. NASONEX [Concomitant]
     Indication: HYPERSENSITIVITY
  17. FLOVENT [Concomitant]
     Indication: ASTHMA
  18. ALBUTEROL [Concomitant]
     Indication: ASTHMA
  19. BONIVA [Concomitant]
     Indication: OSTEOPOROSIS
  20. ZYRTEC [Concomitant]
     Indication: HYPERSENSITIVITY
  21. HYDROCLORADINE [Concomitant]
     Indication: RHEUMATOID ARTHRITIS
  22. LORAZEPAM [Concomitant]
     Indication: CONVULSION

REACTIONS (8)
  - CONVULSION [None]
  - FATIGUE [None]
  - GRAND MAL CONVULSION [None]
  - HEADACHE [None]
  - MALAISE [None]
  - MOBILITY DECREASED [None]
  - STATUS EPILEPTICUS [None]
  - TREMOR [None]
